FAERS Safety Report 5231901-2 (Version None)
Quarter: 2007Q1

REPORT INFORMATION
  Report Type: 
  Country: None (occurrence: None)
  Receive Date: 20070206
  Receipt Date: 20070125
  Transmission Date: 20070707
  Serious: Yes (Other)
  Sender: FDA-Public Use
  Company Number: JP-PFIZER INC-2007006137

PATIENT
  Sex: Male
  Weight: 68 kg

DRUGS (6)
  1. GABAPEN [Suspect]
     Indication: CONVULSION
     Route: 048
     Dates: start: 20061205, end: 20061220
  2. HYDANTOL [Concomitant]
     Route: 048
  3. CARBAMAZEPINE [Concomitant]
     Route: 048
  4. CLOBAZAM [Concomitant]
     Route: 048
     Dates: start: 20011201
  5. VALPROATE SODIUM [Concomitant]
     Route: 048
  6. ALEVIATIN [Concomitant]
     Route: 048
     Dates: start: 19960705

REACTIONS (2)
  - NAUSEA [None]
  - PYREXIA [None]
